FAERS Safety Report 25779036 (Version 3)
Quarter: 2025Q4

REPORT INFORMATION
  Report Type: Spontaneous
  Country: US (occurrence: US)
  Receive Date: 20250909
  Receipt Date: 20251022
  Transmission Date: 20260118
  Serious: Yes (Hospitalization, Other)
  Sender: PFIZER
  Company Number: US-PFIZER INC-202500176499

PATIENT
  Age: 81 Year
  Sex: Male
  Weight: 60 kg

DRUGS (1)
  1. BOSULIF [Suspect]
     Active Substance: BOSUTINIB MONOHYDRATE
     Indication: Chronic myeloid leukaemia
     Dosage: 100 MG, 1X/DAY (1 TABLET BY MOUTH DAILY/TAKE 1 TABLET BY MOUTH DAILY)
     Route: 048

REACTIONS (4)
  - Pulmonary oedema [Unknown]
  - Dyspnoea [Recovering/Resolving]
  - Dialysis [Unknown]
  - Hypertension [Unknown]
